FAERS Safety Report 18220643 (Version 1)
Quarter: 2020Q3

REPORT INFORMATION
  Report Type: Report from Study
  Country: AU (occurrence: AU)
  Receive Date: 20200902
  Receipt Date: 20200902
  Transmission Date: 20201103
  Serious: Yes (Death, Hospitalization)
  Sender: FDA-Public Use
  Company Number: AU-BIOGEN-2019BI00723908

PATIENT
  Age: 76 Year
  Sex: Male

DRUGS (11)
  1. METOPROLOL. [Concomitant]
     Active Substance: METOPROLOL
     Dosage: 1/2 TABLETS BID
     Route: 065
  2. EZETROL [Concomitant]
     Active Substance: EZETIMIBE
     Route: 065
  3. PLEGRIDY [Suspect]
     Active Substance: PEGINTERFERON BETA-1A
     Route: 058
     Dates: start: 20190127, end: 201909
  4. ATORVASTIN [Concomitant]
     Active Substance: ATORVASTATIN
     Route: 065
  5. ESOMEPRAZOLE. [Concomitant]
     Active Substance: ESOMEPRAZOLE MAGNESIUM
     Route: 065
  6. PLEGRIDY [Suspect]
     Active Substance: PEGINTERFERON BETA-1A
     Indication: MULTIPLE SCLEROSIS
     Route: 058
     Dates: start: 20190224, end: 201909
  7. COLECALCIFEROL [Concomitant]
     Active Substance: CHOLECALCIFEROL
     Route: 065
  8. ALDACTONE [Concomitant]
     Active Substance: SPIRONOLACTONE
     Indication: PRODUCT USED FOR UNKNOWN INDICATION
     Dosage: 1/2 TABLET DAILY
     Route: 065
  9. ATACAND [Concomitant]
     Active Substance: CANDESARTAN CILEXETIL
     Indication: PRODUCT USED FOR UNKNOWN INDICATION
     Route: 065
  10. FLUCLOXACILLIN [Concomitant]
     Active Substance: FLUCLOXACILLIN
     Route: 065
     Dates: start: 20190423
  11. DURIDE [Concomitant]
     Indication: PRODUCT USED FOR UNKNOWN INDICATION
     Dosage: 1/2 IN THE MORNING
     Route: 065

REACTIONS (8)
  - Delirium [Recovered/Resolved]
  - Back pain [Not Recovered/Not Resolved]
  - Pyrexia [Recovered/Resolved]
  - Influenza like illness [Not Recovered/Not Resolved]
  - Myocardial infarction [Fatal]
  - Skin ulcer [Unknown]
  - Injection site reaction [Not Recovered/Not Resolved]
  - Cellulitis [Not Recovered/Not Resolved]

NARRATIVE: CASE EVENT DATE: 20190324
